FAERS Safety Report 6398608-X (Version None)
Quarter: 2009Q4

REPORT INFORMATION
  Report Type: 
  Country: None (occurrence: None)
  Receive Date: 20091013
  Receipt Date: 20091002
  Transmission Date: 20100525
  Serious: Yes (Hospitalization)
  Sender: FDA-Public Use
  Company Number: US-AVENTIS-200918923US

PATIENT
  Sex: Male

DRUGS (2)
  1. LANTUS [Suspect]
     Dosage: DOSE: 40-50 SLIDING SCALE
     Route: 058
     Dates: start: 20050101
  2. NOVOLIN                            /00030501/ [Concomitant]
     Dosage: DOSE: UNK

REACTIONS (1)
  - HOSPITALISATION [None]
